FAERS Safety Report 5982576-6 (Version None)
Quarter: 2008Q4

REPORT INFORMATION
  Report Type: 
  Country: None (occurrence: None)
  Receive Date: 20081208
  Receipt Date: 20081127
  Transmission Date: 20090506
  Serious: Yes (Other)
  Sender: FDA-Public Use
  Company Number: PHHY2008BR29938

PATIENT
  Age: 60 Year
  Sex: Female

DRUGS (7)
  1. TRILEPTAL [Suspect]
     Indication: PETIT MAL EPILEPSY
     Dosage: 300 MG, QD
     Route: 048
  2. TRILEPTAL [Suspect]
     Dosage: 300 MG, BID (1 TAB MORN. + 1 AT NIGHT)
     Route: 048
     Dates: start: 20081004
  3. ATENOLOL [Concomitant]
     Indication: HYPERTENSION
     Dosage: 25 MG (1 TABLET/DAY)
     Route: 048
  4. LOSARTAN POTASSIUM [Concomitant]
     Indication: HYPERTENSION
     Dosage: 50 MG, 1 TAB/DAY
     Route: 048
  5. SERTRALINE [Concomitant]
     Indication: DEPRESSION
     Dosage: 50 MG, 1 TAB/DAY
     Route: 048
  6. SYNTHROID [Concomitant]
     Indication: THYROID DISORDER
     Dosage: 50 MG, 1 TAB MORNING
     Route: 048
  7. OLCADIL [Concomitant]
     Indication: ANXIETY
     Dosage: 1 MG, 1 TAB/DAY
     Route: 048

REACTIONS (5)
  - AGEUSIA [None]
  - BLISTER [None]
  - LIP SWELLING [None]
  - RASH PAPULAR [None]
  - URTICARIA [None]
